FAERS Safety Report 10267100 (Version 2)
Quarter: 2014Q2

REPORT INFORMATION
  Report Type: Spontaneous
  Country: US (occurrence: US)
  Receive Date: 20140630
  Receipt Date: 20140630
  Transmission Date: 20141212
  Serious: Yes (Hospitalization)
  Sender: FDA-Public Use
  Company Number: US-ROCHE-1421649

PATIENT
  Age: 52 Year
  Sex: Female
  Weight: 83 kg

DRUGS (6)
  1. PERJETA [Suspect]
     Indication: BREAST CANCER
     Route: 042
     Dates: start: 20140605
  2. HERCEPTIN [Suspect]
     Indication: BREAST CANCER
     Route: 042
     Dates: start: 20140605
  3. ACETAMINOPHEN [Concomitant]
     Indication: PREMEDICATION
     Route: 042
  4. TAXOL [Concomitant]
     Indication: BREAST CANCER
     Route: 042
     Dates: start: 20140605
  5. DECADRON [Concomitant]
     Indication: PREMEDICATION
     Route: 042
     Dates: start: 20140605
  6. PEPCID [Concomitant]
     Indication: PREMEDICATION
     Route: 042
     Dates: start: 20140605

REACTIONS (3)
  - Tachycardia [Recovered/Resolved]
  - Chills [Recovered/Resolved]
  - Nausea [Recovered/Resolved]
